FAERS Safety Report 16527677 (Version 1)
Quarter: 2019Q3

REPORT INFORMATION
  Report Type: Spontaneous
  Country: DE (occurrence: DE)
  Receive Date: 20190703
  Receipt Date: 20190703
  Transmission Date: 20191004
  Serious: Yes (Hospitalization)
  Sender: FDA-Public Use
  Company Number: DE-TEVA-2019-DE-1062916

PATIENT
  Age: 27 Year
  Sex: Female

DRUGS (2)
  1. BELARA [Concomitant]
     Active Substance: CHLORMADINONE ACETATE\ETHINYL ESTRADIOL
     Indication: CONTRACEPTION
     Dosage: 1 DF CONTAINS:  0,03 MG ETHINYLESTRADIOL AND 2,0 MG CHLORMADINONE
     Route: 065
  2. COPAXONE [Suspect]
     Active Substance: GLATIRAMER ACETATE
     Indication: RELAPSING-REMITTING MULTIPLE SCLEROSIS
     Dosage: 3 TIMES PER WEEK
     Route: 058
     Dates: start: 20180829

REACTIONS (14)
  - Paraesthesia [Recovered/Resolved]
  - Lip swelling [Recovered/Resolved]
  - Fear of injection [Not Recovered/Not Resolved]
  - Syncope [Recovered/Resolved]
  - Abdominal pain [Unknown]
  - Dyspnoea [Recovered/Resolved]
  - Skin abrasion [Unknown]
  - Dizziness [Unknown]
  - Constipation [Unknown]
  - Palpitations [Recovered/Resolved]
  - Dental pulp disorder [Recovered/Resolved with Sequelae]
  - Tooth fracture [Recovered/Resolved with Sequelae]
  - Injection site pain [Unknown]
  - Flushing [Recovered/Resolved]

NARRATIVE: CASE EVENT DATE: 20181009
